FAERS Safety Report 5898741-2 (Version None)
Quarter: 2008Q3

REPORT INFORMATION
  Report Type: 
  Country: None (occurrence: None)
  Receive Date: 20080925
  Receipt Date: 20080905
  Transmission Date: 20090109
  Serious: No
  Sender: FDA-Public Use
  Company Number: A0728321A

PATIENT
  Age: 58 Year
  Sex: Female

DRUGS (23)
  1. WELLBUTRIN XL [Suspect]
     Indication: DEPRESSION
     Dosage: 250MG PER DAY
     Route: 048
     Dates: start: 20080101, end: 20080726
  2. REQUIP [Suspect]
     Indication: RESTLESS LEGS SYNDROME
     Dosage: 6MG PER DAY
     Route: 048
     Dates: start: 20050101
  3. CYMBALTA [Suspect]
     Indication: DEPRESSION
     Dosage: 30MG PER DAY
     Route: 048
     Dates: start: 20080402, end: 20080628
  4. CEFTIN [Suspect]
     Route: 048
     Dates: start: 20030101
  5. UNKNOWN MEDICATION [Concomitant]
  6. TOPROL-XL [Concomitant]
     Dosage: 50MG AT NIGHT
     Route: 048
  7. ALPRAZOLAM [Concomitant]
     Dosage: .75MG PER DAY
     Route: 048
  8. FUROSEMIDE [Concomitant]
     Dosage: 160MG PER DAY
  9. HYDROCODONE BITARTRATE + ACETAMINOPHEN [Concomitant]
     Dosage: 500MG AS REQUIRED
  10. LEVOTHYROXINE SODIUM [Concomitant]
     Dosage: 75MCG IN THE MORNING
  11. ESTRADIOL [Concomitant]
     Dosage: 1MG WEEKLY
  12. ZOLPIDEM [Concomitant]
     Dosage: .5MG AT NIGHT
  13. GLUCOSAMINE [Concomitant]
     Dosage: 500MG IN THE MORNING
  14. ACIDOPHILUS [Concomitant]
     Dosage: 2TAB PER DAY
  15. VITAMIN B-12 [Concomitant]
     Dosage: 500MCG IN THE MORNING
  16. MULTI-VITAMIN [Concomitant]
     Dosage: 1TAB PER DAY
  17. COQ10 [Concomitant]
     Dosage: 100MG IN THE MORNING
  18. FLAX SEED OIL [Concomitant]
     Dosage: 1000MG IN THE MORNING
  19. CHROMIUM [Concomitant]
  20. VITAMIN D3 [Concomitant]
     Dosage: 1000IU IN THE MORNING
  21. ADIPEX [Concomitant]
     Dosage: .5TAB PER DAY
     Route: 048
  22. IBUPROFEN [Concomitant]
     Indication: BACK PAIN
     Dosage: 1600MG PER DAY
  23. AMBIEN [Concomitant]
     Dosage: 1.5TAB AT NIGHT

REACTIONS (10)
  - ANTIBODY TEST POSITIVE [None]
  - ARTHRALGIA [None]
  - DRUG INEFFECTIVE [None]
  - INSOMNIA [None]
  - JOINT SWELLING [None]
  - NAUSEA [None]
  - OEDEMA PERIPHERAL [None]
  - ONYCHOPHAGIA [None]
  - SKIN ULCER [None]
  - THERAPEUTIC RESPONSE UNEXPECTED [None]
